FAERS Safety Report 24360851 (Version 1)
Quarter: 2024Q3

REPORT INFORMATION
  Report Type: Spontaneous
  Country: US (occurrence: US)
  Receive Date: 20240925
  Receipt Date: 20240925
  Transmission Date: 20241016
  Serious: Yes (Death)
  Sender: NOVARTIS
  Company Number: US-002147023-NVSC2024US190055

PATIENT
  Sex: Male

DRUGS (1)
  1. PLUVICTO [Suspect]
     Active Substance: LUTETIUM LU-177 VIPIVOTIDE TETRAXETAN
     Indication: Prostate cancer
     Dosage: 1000 MBQ (EVERY 6 WEEKS FOR UP TO 6 DOSES) (MBQ/ML) (VIAL)
     Route: 042
     Dates: start: 20230919, end: 20231212

REACTIONS (2)
  - Dehydration [Fatal]
  - Ageusia [Fatal]
